FAERS Safety Report 7374467-3 (Version None)
Quarter: 2011Q1

REPORT INFORMATION
  Report Type: 
  Country: None (occurrence: None)
  Receive Date: 20110317
  Receipt Date: 20110303
  Transmission Date: 20110831
  Serious: Yes (Other)
  Sender: FDA-Public Use
  Company Number: CIP10001982

PATIENT
  Sex: Female
  Weight: 61.2 kg

DRUGS (17)
  1. DIAZEPAM [Concomitant]
  2. ERYTHROCIN /00020901/ (ERYTHROMYCIN) [Concomitant]
  3. PREVACID [Concomitant]
  4. PROMETHAZINE [Concomitant]
  5. CELEBREX [Concomitant]
  6. ACTONEL [Suspect]
     Indication: OSTEOPOROSIS
     Dosage: 35 MG, ORAL
     Route: 048
     Dates: start: 20030101, end: 20070101
  7. METHYLPREDNISOLONE [Concomitant]
  8. BENTYL [Concomitant]
  9. LIPIOR (ATORVASTATIN CALCIUM) [Concomitant]
  10. LISINOPRIL [Concomitant]
  11. DEXAMETHASONE (DEXAMETHASONE) [Concomitant]
  12. SYNTHROID [Concomitant]
  13. VIGAMOX [Concomitant]
  14. BONIVA [Suspect]
     Indication: OSTEOPOROSIS
     Dosage: 150 MG ONCE MONTHLY
     Dates: start: 20070601, end: 20080801
  15. MOBIC [Concomitant]
  16. FOSAMAX [Suspect]
     Indication: OSTEOPOROSIS
     Dosage: 70 MG ONCE WEEKLY,ORAL
     Route: 048
     Dates: start: 20010101, end: 20030101
  17. EXELDERM (SULCONAZOLE NITRATE) [Concomitant]

REACTIONS (22)
  - MOUTH ULCERATION [None]
  - LOW TURNOVER OSTEOPATHY [None]
  - FALL [None]
  - GINGIVAL PAIN [None]
  - TOOTH DISORDER [None]
  - WOUND DEHISCENCE [None]
  - PALATAL OEDEMA [None]
  - ORAL TORUS [None]
  - BONE DISORDER [None]
  - TOOTHACHE [None]
  - SENSATION OF PRESSURE [None]
  - OSTEONECROSIS OF JAW [None]
  - CELLULITIS [None]
  - JAW DISORDER [None]
  - FEMUR FRACTURE [None]
  - ENTEROBACTER INFECTION [None]
  - PRIMARY SEQUESTRUM [None]
  - MULTIPLE INJURIES [None]
  - ORAL PAIN [None]
  - STRESS FRACTURE [None]
  - MENISCUS LESION [None]
  - TOOTH FRACTURE [None]
